FAERS Safety Report 7979366-1 (Version None)
Quarter: 2011Q4

REPORT INFORMATION
  Report Type: 
  Country: None (occurrence: None)
  Receive Date: 20111214
  Receipt Date: 20110826
  Transmission Date: 20120403
  Serious: No
  Sender: FDA-Public Use
  Company Number: US-GLAXOSMITHKLINE-A0942473A

PATIENT
  Age: 21 Year
  Sex: Male

DRUGS (1)
  1. NICORETTE (MINT) [Suspect]
     Indication: EX-TOBACCO USER
     Dates: end: 20110826

REACTIONS (4)
  - ABDOMINAL DISCOMFORT [None]
  - MALAISE [None]
  - HEADACHE [None]
  - DRUG INEFFECTIVE [None]
